FAERS Safety Report 11347056 (Version 1)
Quarter: 2015Q3

REPORT INFORMATION
  Report Type: Spontaneous
  Country: US (occurrence: US)
  Receive Date: 20150803
  Receipt Date: 20150803
  Transmission Date: 20151125
  Serious: No
  Sender: FDA-Public Use
  Company Number: US-ELI_LILLY_AND_COMPANY-US201103006765

PATIENT
  Age: 14 Year
  Sex: Male

DRUGS (4)
  1. LITHIUM. [Concomitant]
     Active Substance: LITHIUM
  2. CONCERTA [Concomitant]
     Active Substance: METHYLPHENIDATE HYDROCHLORIDE
  3. ZYPREXA ZYDIS [Suspect]
     Active Substance: OLANZAPINE
     Dosage: 30 MG, QD
     Route: 048
  4. ZYPREXA ZYDIS [Suspect]
     Active Substance: OLANZAPINE
     Indication: ABNORMAL BEHAVIOUR
     Dosage: 45 MG, QD
     Route: 048

REACTIONS (4)
  - Anxiety [Unknown]
  - Off label use [Unknown]
  - Prescribed overdose [Unknown]
  - Body height below normal [Unknown]
